FAERS Safety Report 8273904-X (Version None)
Quarter: 2012Q2

REPORT INFORMATION
  Report Type: 
  Country: None (occurrence: None)
  Receive Date: 20120409
  Receipt Date: 20120329
  Transmission Date: 20120825
  Serious: Yes (Hospitalization, Other)
  Sender: FDA-Public Use
  Company Number: 2012MA004190

PATIENT
  Age: 59 Year
  Sex: Female

DRUGS (3)
  1. LOSARTAN SANDOZ BRAND [Concomitant]
  2. LOSARTAN POTASSIUM [Suspect]
     Dosage: 100 MG;BID;PO
     Route: 048
     Dates: start: 20110707
  3. COZAAR [Concomitant]

REACTIONS (3)
  - PRODUCT QUALITY ISSUE [None]
  - MYOCARDIAL INFARCTION [None]
  - MEDICATION RESIDUE [None]
